FAERS Safety Report 24073762 (Version 1)
Quarter: 2024Q3

REPORT INFORMATION
  Report Type: Report from Study
  Country: CA (occurrence: CA)
  Receive Date: 20240710
  Receipt Date: 20240710
  Transmission Date: 20241017
  Serious: Yes (Hospitalization, Other)
  Sender: PIERRE FABRE MEDICAMENT
  Company Number: CA-PFM-2020-15189

PATIENT
  Age: 48 Year
  Sex: Female

DRUGS (5)
  1. PROPRANOLOL HYDROCHLORIDE [Suspect]
     Active Substance: PROPRANOLOL HYDROCHLORIDE
     Indication: Migraine
     Dosage: UNKNOWN DAILY DOSE
     Route: 065
     Dates: start: 201808, end: 201811
  2. PROPRANOLOL HYDROCHLORIDE [Suspect]
     Active Substance: PROPRANOLOL HYDROCHLORIDE
     Indication: Off label use
  3. AIMOVIG [Suspect]
     Active Substance: ERENUMAB-AOOE
     Indication: Migraine
     Dosage: 4 DOSES (70MG)
     Route: 065
     Dates: start: 20190701, end: 20191218
  4. AIMOVIG [Suspect]
     Active Substance: ERENUMAB-AOOE
     Indication: Off label use
     Dosage: 1 DOSE (140 MG)
     Route: 065
  5. TOPIRAMATE [Suspect]
     Active Substance: TOPIRAMATE
     Indication: Migraine
     Dosage: DURING 5 MONTHS
     Route: 065
     Dates: start: 201307, end: 201311

REACTIONS (16)
  - Carcinoid tumour pulmonary [Unknown]
  - Breast cyst [Unknown]
  - Nodule [Unknown]
  - Cardiac disorder [Unknown]
  - Chest pain [Unknown]
  - Dyspnoea [Unknown]
  - Facet joint syndrome [Unknown]
  - Troponin increased [Unknown]
  - Migraine [Recovering/Resolving]
  - Vertebral foraminal stenosis [Unknown]
  - Vertebral osteophyte [Unknown]
  - Scar [Unknown]
  - Drug ineffective [Unknown]
  - Product use issue [Unknown]
  - Product use in unapproved indication [Unknown]
  - Off label use [Unknown]

NARRATIVE: CASE EVENT DATE: 20180101
